FAERS Safety Report 9163032 (Version 1)
Quarter: 2012Q4

REPORT INFORMATION
  Report Type: 
  Country: AU (occurrence: AU)
  Receive Date: 20121218
  Receipt Date: 20121218
  Transmission Date: 20130627
  Serious: Yes (Other)
  Sender: FDA-Public Use
  Company Number: AU-RB-047741-12

PATIENT
  Sex: Female

DRUGS (1)
  1. BUPRENORPHINE [Suspect]
     Indication: DRUG DEPENDENCE
     Dosage: Dosing details unknown
     Route: 065

REACTIONS (2)
  - Foetal chromosome abnormality [Unknown]
  - Exposure during pregnancy [Recovered/Resolved]
